APPROVED DRUG PRODUCT: RAMELTEON
Active Ingredient: RAMELTEON
Strength: 8MG
Dosage Form/Route: TABLET;ORAL
Application: A213186 | Product #001
Applicant: GRANULES PHARMACEUTICALS INC
Approved: Aug 21, 2020 | RLD: No | RS: No | Type: DISCN